FAERS Safety Report 8829312 (Version 2)
Quarter: 2013Q1

REPORT INFORMATION
  Report Type: Spontaneous
  Country: BR (occurrence: BR)
  Receive Date: 20121009
  Receipt Date: 20130211
  Transmission Date: 20140127
  Serious: Yes (Hospitalization)
  Sender: FDA-Public Use
  Company Number: BR-AMGEN-BRASP2012056211

PATIENT
  Age: 62 Year
  Sex: Female
  Weight: 60 kg

DRUGS (7)
  1. ENBREL [Suspect]
     Indication: RHEUMATOID ARTHRITIS
     Dosage: UNK
     Dates: start: 201204
  2. ENBREL [Suspect]
     Dosage: 50 MG, 1X/WEEK
     Route: 058
     Dates: start: 201205
  3. LISADOR [Concomitant]
     Dosage: EVERY 6 HOURS
  4. CALCIUM [Concomitant]
     Indication: MINERAL SUPPLEMENTATION
     Dosage: UNK
     Dates: start: 2002
  5. CHLORTALIDONE [Concomitant]
     Indication: HYPERTENSION
     Dosage: 1 TABLET (25 MG), 1X/DAY
     Route: 048
     Dates: start: 2006
  6. PURAN T4 [Concomitant]
     Indication: HYPOTHYROIDISM
     Dosage: 1 TABLET (50 MG), 1X/DAY
     Route: 048
     Dates: start: 2002
  7. RIVOTRIL [Concomitant]
     Dosage: 1 TABLET (2 MG), 1X/DAY
     Route: 048

REACTIONS (12)
  - Bone erosion [Unknown]
  - Gait disturbance [Not Recovered/Not Resolved]
  - Rheumatic disorder [Unknown]
  - Swelling [Unknown]
  - Injection site pruritus [Unknown]
  - Injection site erythema [Unknown]
  - Drug ineffective [Unknown]
  - Pain in extremity [Not Recovered/Not Resolved]
  - Dysstasia [Unknown]
  - Weight increased [Unknown]
  - Pyrexia [Not Recovered/Not Resolved]
  - Injection site swelling [Unknown]
